FAERS Safety Report 8147937-8 (Version None)
Quarter: 2012Q1

REPORT INFORMATION
  Report Type: 
  Country: None (occurrence: None)
  Receive Date: 20120218
  Receipt Date: 20110330
  Transmission Date: 20120608
  Serious: No
  Sender: FDA-Public Use
  Company Number: US-ALLERGAN-1104474US

PATIENT
  Age: 56 Year
  Sex: Female

DRUGS (3)
  1. BOTULINUM TOXIN TYPE A [Suspect]
     Indication: BLEPHAROSPASM
     Dosage: UNK UNITS, SINGLE
     Dates: start: 20090101, end: 20090101
  2. BOTULINUM TOXIN TYPE A [Suspect]
     Dosage: UNK UNITS, SINGLE
     Route: 030
     Dates: start: 20101101, end: 20101101
  3. BOTULINUM TOXIN TYPE A [Suspect]
     Dosage: UNK UNITS, SINGLE
     Route: 030
     Dates: start: 20110101, end: 20110101

REACTIONS (4)
  - EYELID PTOSIS [None]
  - THERAPEUTIC RESPONSE DECREASED [None]
  - DRY EYE [None]
  - EYE PAIN [None]
